FAERS Safety Report 4553863-3 (Version None)
Quarter: 2005Q1

REPORT INFORMATION
  Report Type: 
  Country: None (occurrence: None)
  Receive Date: 20050112
  Receipt Date: 20050112
  Transmission Date: 20050727
  Serious: No
  Sender: FDA-Public Use
  Company Number: None

PATIENT
  Age: 74 Year
  Sex: Female
  Weight: 63.05 kg

DRUGS (1)
  1. NIACIN [Suspect]
     Indication: BLOOD CHOLESTEROL ABNORMAL
     Dosage: 1 TABLET PER DAY
     Dates: start: 19930101, end: 20041021

REACTIONS (1)
  - CONJUNCTIVAL HAEMORRHAGE [None]
